FAERS Safety Report 7272181-6 (Version None)
Quarter: 2011Q1

REPORT INFORMATION
  Report Type: 
  Country: None (occurrence: None)
  Receive Date: 20110203
  Receipt Date: 20110119
  Transmission Date: 20110831
  Serious: Yes (Disabling)
  Sender: FDA-Public Use
  Company Number: PHHY2011GB04452

PATIENT
  Age: 47 Year
  Sex: Female
  Weight: 133 kg

DRUGS (17)
  1. AMLODIPINE [Concomitant]
     Dosage: UNK
     Dates: start: 20101221, end: 20110101
  2. BUDESONIDE [Concomitant]
     Dosage: UNK
     Dates: start: 20101221
  3. DICLOFENAC SODIUM [Concomitant]
     Dosage: UNK
     Dates: start: 20101221
  4. DICLOFENAC SODIUM [Concomitant]
     Dosage: UNK
     Dates: start: 20100923, end: 20101021
  5. DIFFLAM [Concomitant]
     Dosage: UNK
     Dates: start: 20101230, end: 20110104
  6. LISINOPRIL [Concomitant]
     Dosage: UNK
     Dates: start: 20100923, end: 20101021
  7. LISINOPRIL [Concomitant]
     Dosage: UNK
     Dates: start: 20100221
  8. AMOXICILLIN [Concomitant]
     Dosage: UNK
     Dates: start: 20101220, end: 20101221
  9. TAMSULOSIN HYDROCHLORIDE [Concomitant]
     Dosage: UNK
     Dates: start: 20100923, end: 20101021
  10. OXYTETRACYCLINE [Concomitant]
     Dosage: UNK
     Dates: start: 20110107
  11. FLUOXETINE [Concomitant]
     Dosage: UNK
     Dates: start: 20101221
  12. AMLODIPINE [Concomitant]
     Dosage: UNK
     Dates: start: 20100923, end: 20101021
  13. FLUOXETINE [Concomitant]
     Dosage: UNK
     Dates: start: 20100921, end: 20101023
  14. PREDNISOLONE [Concomitant]
     Dosage: UNK
     Dates: start: 20101230, end: 20110109
  15. CLARITHROMYCIN [Suspect]
     Dosage: UNK
     Dates: start: 20110113
  16. PREDNISOLONE [Concomitant]
     Dosage: UNK
     Dates: start: 20101220, end: 20101227
  17. VENTOLIN [Concomitant]
     Dosage: UNK
     Dates: start: 20110104

REACTIONS (1)
  - JOINT SWELLING [None]
